FAERS Safety Report 10188399 (Version 1)
Quarter: 2014Q2

REPORT INFORMATION
  Report Type: Spontaneous
  Country: US (occurrence: US)
  Receive Date: 20140522
  Receipt Date: 20140522
  Transmission Date: 20141212
  Serious: No
  Sender: FDA-Public Use
  Company Number: US-PFIZER INC-2014139194

PATIENT
  Age: 58 Year
  Sex: Male
  Weight: 63.49 kg

DRUGS (5)
  1. LYRICA [Suspect]
     Indication: PAIN
     Dosage: UNK
     Dates: start: 2007
  2. LYRICA [Suspect]
     Indication: HERPES ZOSTER
     Dosage: UNK
     Dates: end: 2009
  3. LYRICA [Suspect]
     Indication: POST HERPETIC NEURALGIA
  4. NADOLOL [Concomitant]
     Indication: HYPERTENSION
     Dosage: 40 MG, DAILY
  5. NIFEDICAL [Concomitant]
     Indication: HYPERTENSION
     Dosage: 60 MG, DAILY

REACTIONS (3)
  - Peripheral swelling [Recovered/Resolved]
  - Joint swelling [Recovered/Resolved]
  - Weight increased [Recovered/Resolved]
